FAERS Safety Report 7042383-2 (Version None)
Quarter: 2010Q4

REPORT INFORMATION
  Report Type: 
  Country: None (occurrence: None)
  Receive Date: 20101013
  Receipt Date: 20090929
  Transmission Date: 20110411
  Serious: No
  Sender: FDA-Public Use
  Company Number: US-ASTRAZENECA-2009SE16663

PATIENT
  Age: 973 Month
  Sex: Male
  Weight: 63.5 kg

DRUGS (3)
  1. SYMBICORT [Suspect]
     Indication: CHRONIC OBSTRUCTIVE PULMONARY DISEASE
     Route: 055
     Dates: start: 20090301
  2. ZOCOR [Concomitant]
  3. CARDIZEM [Concomitant]

REACTIONS (3)
  - DRY MOUTH [None]
  - RHINORRHOEA [None]
  - THROAT IRRITATION [None]
